FAERS Safety Report 4320121-1 (Version None)
Quarter: 2004Q1

REPORT INFORMATION
  Report Type: 
  Country: None (occurrence: None)
  Receive Date: 20040317
  Receipt Date: 20040305
  Transmission Date: 20041129
  Serious: Yes (Other)
  Sender: FDA-Public Use
  Company Number: US-JNJFOC-20031201713

PATIENT
  Age: 86 Year
  Sex: Male
  Weight: 63.5036 kg

DRUGS (12)
  1. REMICADE [Suspect]
     Indication: CROHN'S DISEASE
     Dosage: 500 MG, INTRAVENOUS
     Route: 042
     Dates: start: 20030528
  2. REMICADE [Suspect]
     Indication: CROHN'S DISEASE
     Dosage: 500 MG, INTRAVENOUS
     Route: 042
     Dates: start: 20030827
  3. REMICADE [Suspect]
     Indication: CROHN'S DISEASE
     Dosage: 500 MG, INTRAVENOUS
     Route: 042
     Dates: start: 20031022
  4. PREDNISONE [Concomitant]
  5. ASACOL [Concomitant]
  6. CIPRO [Concomitant]
  7. METRO (METRONIDAZOLE) [Concomitant]
  8. LIPITOR [Concomitant]
  9. BUMEX [Concomitant]
  10. VIOXX [Concomitant]
  11. NITROGLYCERIN [Concomitant]
  12. COREG [Concomitant]

REACTIONS (8)
  - CHEST DISCOMFORT [None]
  - COLD SWEAT [None]
  - CYANOSIS [None]
  - ERYTHEMA [None]
  - HEART RATE INCREASED [None]
  - INFUSION RELATED REACTION [None]
  - LOSS OF CONSCIOUSNESS [None]
  - PALLOR [None]
